FAERS Safety Report 8384126-6 (Version None)
Quarter: 2012Q2

REPORT INFORMATION
  Report Type: 
  Country: None (occurrence: None)
  Receive Date: 20120524
  Receipt Date: 20120515
  Transmission Date: 20120825
  Serious: Yes (Other)
  Sender: FDA-Public Use
  Company Number: JP-VERTEX PHARMACEUTICALS INC.-AE-2012-007470

PATIENT
  Age: 64 Year
  Sex: Female

DRUGS (8)
  1. TELAVIC (TELAPREVIR) [Suspect]
     Indication: HEPATITIS C
     Route: 048
     Dates: start: 20120312
  2. RIBAVIRIN [Concomitant]
     Route: 048
     Dates: start: 20120416
  3. PEGINTERFERON ALFA-2B [Concomitant]
     Route: 051
     Dates: start: 20120402
  4. RIBAVIRIN [Concomitant]
     Route: 048
     Dates: start: 20120402, end: 20120409
  5. PEGINTERFERON ALFA-2B [Concomitant]
     Indication: HEPATITIS C
     Route: 051
     Dates: start: 20120312, end: 20120318
  6. SELBEX [Concomitant]
     Route: 048
     Dates: start: 20120313
  7. RIBAVIRIN [Concomitant]
     Indication: HEPATITIS C
     Route: 048
     Dates: start: 20120312, end: 20120401
  8. PEGINTERFERON ALFA-2B [Concomitant]
     Route: 051
     Dates: start: 20120319, end: 20120401

REACTIONS (9)
  - SEBORRHOEIC DERMATITIS [None]
  - PAROSMIA [None]
  - URINE ODOUR ABNORMAL [None]
  - NEUTROPHIL COUNT DECREASED [None]
  - OEDEMA [None]
  - NAUSEA [None]
  - BLOOD URIC ACID INCREASED [None]
  - SKIN ODOUR ABNORMAL [None]
  - BREATH ODOUR [None]
